FAERS Safety Report 4875565-6 (Version None)
Quarter: 2005Q4

REPORT INFORMATION
  Report Type: 
  Country: None (occurrence: None)
  Receive Date: 20051205
  Receipt Date: 20050725
  Transmission Date: 20060501
  Serious: Yes (Other)
  Sender: FDA-Public Use
  Company Number: 2005-130773-NL

PATIENT
  Age: 33 Year
  Sex: Female
  Weight: 83.9 kg

DRUGS (3)
  1. NUVARING [Suspect]
     Indication: CONTRACEPTION
     Dosage: VAGINAL, INSERT 1 RING X 21 DAYS AND REMOVE X 7 DAYS
     Route: 067
     Dates: start: 20040801
  2. PREVACID [Concomitant]
  3. MULTIVITAMIN [Concomitant]

REACTIONS (1)
  - THROMBOPHLEBITIS SUPERFICIAL [None]
